FAERS Safety Report 22958355 (Version 3)
Quarter: 2023Q4

REPORT INFORMATION
  Report Type: Spontaneous
  Country: US (occurrence: US)
  Receive Date: 20230919
  Receipt Date: 20231130
  Transmission Date: 20240110
  Serious: Yes (Hospitalization, Other)
  Sender: FDA-Public Use
  Company Number: US-PFIZER INC-PV202300156247

PATIENT
  Age: 67 Year
  Sex: Female
  Weight: 90.78 kg

DRUGS (5)
  1. IBRANCE [Suspect]
     Active Substance: PALBOCICLIB
     Indication: Breast cancer female
     Dosage: 125 MG, CYCLIC, (21 DAYS FOLLOWED BY 7 DAYS OFF)
     Dates: start: 202110
  2. IBRANCE [Suspect]
     Active Substance: PALBOCICLIB
     Dosage: 100 MG, DAILY
     Dates: start: 202208
  3. IBRANCE [Suspect]
     Active Substance: PALBOCICLIB
     Dosage: 75 MG, CYCLIC, (1 TABLET(S) EVERY DAY BY ORAL ROUTE FOR 21 DAYS, FOLLOWED BY 7 DAYS OFF)
     Route: 048
  4. LETROZOLE [Suspect]
     Active Substance: LETROZOLE
     Dosage: 2.5 MG, DAILY
     Dates: start: 201807
  5. FASLODEX [Concomitant]
     Active Substance: FULVESTRANT
     Dosage: UNK
     Dates: start: 20230627

REACTIONS (5)
  - Pancytopenia [Recovering/Resolving]
  - Neutropenia [Recovered/Resolved]
  - Femur fracture [Unknown]
  - Deep vein thrombosis [Unknown]
  - Leukopenia [Recovering/Resolving]

NARRATIVE: CASE EVENT DATE: 20230501
